FAERS Safety Report 6741692-1 (Version None)
Quarter: 2010Q2

REPORT INFORMATION
  Report Type: 
  Country: None (occurrence: None)
  Receive Date: 20100526
  Receipt Date: 20100514
  Transmission Date: 20101027
  Serious: Yes (Other)
  Sender: FDA-Public Use
  Company Number: US-SANOFI-AVENTIS-2010SA028771

PATIENT
  Age: 63 Year
  Sex: Male

DRUGS (2)
  1. PLAVIX [Suspect]
     Indication: STENT PLACEMENT
     Route: 048
     Dates: start: 19980101, end: 20100501
  2. COUMADIN [Suspect]
     Indication: STENT PLACEMENT
     Route: 065
     Dates: start: 19980101

REACTIONS (1)
  - HERNIA [None]
